FAERS Safety Report 21036541 (Version 1)
Quarter: 2022Q3

REPORT INFORMATION
  Report Type: Other
  Country: GB (occurrence: GB)
  Receive Date: 20220702
  Receipt Date: 20220702
  Transmission Date: 20221027
  Serious: No
  Sender: FDA-Public Use
  Company Number: GB-MHRA-MED-202206211222430870-CKMPH

PATIENT
  Age: 37 Year
  Sex: Female
  Weight: 75 kg

DRUGS (1)
  1. SERTRALINE HYDROCHLORIDE [Suspect]
     Active Substance: SERTRALINE HYDROCHLORIDE
     Indication: Premenstrual dysphoric disorder
     Dosage: 50 MG
     Route: 065
     Dates: start: 2019

REACTIONS (1)
  - Food intolerance [Recovered/Resolved]

NARRATIVE: CASE EVENT DATE: 20190101
